FAERS Safety Report 10203555 (Version 2)
Quarter: 2014Q2

REPORT INFORMATION
  Report Type: Spontaneous
  Country: US (occurrence: US)
  Receive Date: 20140529
  Receipt Date: 20140529
  Transmission Date: 20141212
  Serious: Yes (Other)
  Sender: FDA-Public Use
  Company Number: US-JNJFOC-20140319325

PATIENT
  Age: 77 Year
  Sex: Male
  Weight: 79.38 kg

DRUGS (12)
  1. XARELTO [Suspect]
     Indication: CEREBROVASCULAR ACCIDENT PROPHYLAXIS
     Dosage: TIME: PM
     Route: 048
     Dates: start: 20140104
  2. XARELTO [Suspect]
     Indication: CEREBROVASCULAR ACCIDENT PROPHYLAXIS
     Route: 048
     Dates: start: 20140206
  3. XARELTO [Suspect]
     Indication: ATRIAL FIBRILLATION
     Dosage: TIME: PM
     Route: 048
     Dates: start: 20140104
  4. XARELTO [Suspect]
     Indication: ATRIAL FIBRILLATION
     Route: 048
     Dates: start: 20140206
  5. FUROSEMIDE [Concomitant]
     Route: 065
  6. METFORMIN [Concomitant]
     Route: 065
  7. POTASSIUM CHLORIDE [Concomitant]
     Route: 065
  8. HYDRALAZINE [Concomitant]
     Route: 065
  9. COREX [Concomitant]
     Route: 065
  10. TAMSULOSIN [Concomitant]
     Route: 065
  11. AMLODIPINE [Concomitant]
     Route: 065
  12. LISINOPRIL [Concomitant]
     Route: 065

REACTIONS (2)
  - Haematoma [Recovered/Resolved]
  - Deep vein thrombosis [Recovered/Resolved]
